FAERS Safety Report 4970181-X (Version None)
Quarter: 2006Q2

REPORT INFORMATION
  Report Type: 
  Country: None (occurrence: None)
  Receive Date: 20060406
  Receipt Date: 20060328
  Transmission Date: 20061013
  Serious: Yes (Death)
  Sender: FDA-Public Use
  Company Number: 2006US000170

PATIENT
  Age: 82 Year
  Sex: Female

DRUGS (1)
  1. ADENOSCAN [Suspect]
     Indication: SCAN MYOCARDIAL PERFUSION

REACTIONS (4)
  - ACUTE RESPIRATORY FAILURE [None]
  - CHEST PAIN [None]
  - INFUSION RELATED REACTION [None]
  - WHEEZING [None]
